FAERS Safety Report 8085936-5 (Version None)
Quarter: 2012Q1

REPORT INFORMATION
  Report Type: 
  Country: None (occurrence: None)
  Receive Date: 20120128
  Receipt Date: 20110505
  Transmission Date: 20120608
  Serious: No
  Sender: FDA-Public Use
  Company Number: US-ABBOTT-11P-163-0723602-00

PATIENT
  Sex: Female

DRUGS (12)
  1. FOLIC ACID [Concomitant]
     Indication: VITAMIN SUPPLEMENTATION
  2. LOTREL [Concomitant]
     Indication: HYPERTENSION
  3. LEVEMIR [Concomitant]
     Indication: DIABETES MELLITUS
  4. METFFORMIN HYDROCHLORIDE [Concomitant]
     Indication: DIABETES MELLITUS
  5. SYNTHROID [Concomitant]
     Indication: HYPOTHYROIDISM
  6. HUMIRA [Suspect]
     Indication: RHEUMATOID ARTHRITIS
     Dates: start: 20110502
  7. PREDNISONE TAB [Concomitant]
     Indication: RHEUMATOID ARTHRITIS
  8. GLIPIZIDE [Concomitant]
     Indication: DIABETES MELLITUS
  9. METHOTREXATE [Concomitant]
     Indication: RHEUMATOID ARTHRITIS
  10. CRESTOR [Concomitant]
     Indication: BLOOD CHOLESTEROL INCREASED
  11. ESTRADIOL [Concomitant]
     Indication: HORMONE REPLACEMENT THERAPY
  12. SULINDAC [Concomitant]
     Indication: RHEUMATOID ARTHRITIS

REACTIONS (3)
  - VOMITING [None]
  - DIARRHOEA [None]
  - NAUSEA [None]
